FAERS Safety Report 17412044 (Version 1)
Quarter: 2020Q1

REPORT INFORMATION
  Report Type: Spontaneous
  Country: US (occurrence: US)
  Receive Date: 20200129
  Receipt Date: 20200129
  Transmission Date: 20200409
  Serious: No
  Sender: FDA-Public Use
  Company Number: None

PATIENT
  Age: 64 Year
  Sex: Female

DRUGS (1)
  1. ACTEMRA ACTPEN [Suspect]
     Active Substance: TOCILIZUMAB
     Indication: RHEUMATOID ARTHRITIS
     Dosage: ?          OTHER FREQUENCY:UNKNOWN;?
     Route: 058
     Dates: start: 20191028

REACTIONS (6)
  - Increased tendency to bruise [None]
  - Paraesthesia oral [None]
  - Pruritus [None]
  - Injection site pruritus [None]
  - Lip swelling [None]
  - Bone pain [None]

NARRATIVE: CASE EVENT DATE: 20200129
